FAERS Safety Report 10188335 (Version 1)
Quarter: 2014Q2

REPORT INFORMATION
  Report Type: Spontaneous
  Country: JP (occurrence: JP)
  Receive Date: 20140522
  Receipt Date: 20140522
  Transmission Date: 20141212
  Serious: Yes (Other)
  Sender: FDA-Public Use
  Company Number: JP-SA-2014SA063307

PATIENT
  Sex: Female

DRUGS (9)
  1. ALLEGRA [Suspect]
     Indication: NASAL DISORDER
     Route: 048
  2. LENDORMIN [Concomitant]
     Route: 048
  3. SILECE [Concomitant]
     Route: 048
  4. AMITRIPTYLINE HYDROCHLORIDE [Concomitant]
     Route: 048
  5. TETRAMIDE [Concomitant]
     Route: 048
  6. PANTOSIN [Concomitant]
     Route: 048
  7. MAGNESIUM OXIDE [Concomitant]
     Route: 048
  8. MUCOSTA [Concomitant]
     Route: 048
  9. FERROUS FUMARATE [Concomitant]
     Route: 048

REACTIONS (1)
  - Urinary retention [Unknown]
